FAERS Safety Report 4280260-0 (Version None)
Quarter: 2004Q1

REPORT INFORMATION
  Report Type: 
  Country: None (occurrence: None)
  Receive Date: 20040126
  Receipt Date: 20040119
  Transmission Date: 20041129
  Serious: Yes (Hospitalization, Other)
  Sender: FDA-Public Use
  Company Number: 200410079BCC

PATIENT
  Age: 13 Year
  Sex: Female
  Weight: 45.8133 kg

DRUGS (3)
  1. ALEVE (CAPLET) [Suspect]
     Indication: HEADACHE
     Dosage: 220 MG, QD, ORAL
     Route: 048
     Dates: start: 20030831, end: 20040105
  2. ALEVE (CAPLET) [Suspect]
     Indication: STOMACH DISCOMFORT
     Dosage: 220 MG, QD, ORAL
     Route: 048
     Dates: start: 20030831, end: 20040105
  3. ANTIBIOTIC [Concomitant]

REACTIONS (7)
  - COMA [None]
  - CONSTIPATION [None]
  - CONVULSION [None]
  - GASTRITIS [None]
  - HAEMATEMESIS [None]
  - LOSS OF CONSCIOUSNESS [None]
  - PULSE PRESSURE DECREASED [None]
